FAERS Safety Report 6884725-4 (Version None)
Quarter: 2010Q3

REPORT INFORMATION
  Report Type: 
  Country: None (occurrence: None)
  Receive Date: 20100729
  Receipt Date: 20070731
  Transmission Date: 20110219
  Serious: No
  Sender: FDA-Public Use
  Company Number: US-PFIZER INC-2007064355

PATIENT
  Sex: Female
  Weight: 57.7 kg

DRUGS (4)
  1. CELEBREX [Suspect]
     Indication: NEOPLASM PROPHYLAXIS
  2. CELEBREX [Suspect]
     Indication: ARTHRITIS
  3. SYNTHROID [Concomitant]
  4. ELMIRON [Concomitant]

REACTIONS (1)
  - ANAEMIA [None]
